FAERS Safety Report 21741464 (Version 1)
Quarter: 2022Q4

REPORT INFORMATION
  Report Type: Report from Study
  Country: IL (occurrence: IL)
  Receive Date: 20221216
  Receipt Date: 20221216
  Transmission Date: 20230113
  Serious: Yes (Other)
  Sender: FDA-Public Use
  Company Number: IL-ABBVIE-4230007

PATIENT
  Age: 70 Year
  Sex: Male

DRUGS (3)
  1. CARBIDOPA\LEVODOPA [Suspect]
     Active Substance: CARBIDOPA\LEVODOPA
     Indication: Parkinson^s disease
     Dosage: PERCUTANEOUS J-TUBE
     Route: 065
     Dates: start: 20140219
  2. CARBIDOPA\LEVODOPA [Suspect]
     Active Substance: CARBIDOPA\LEVODOPA
     Dosage: MORNING DOSAGE(ML) 9.0, CONTINUOUS DOSAGE (ML/H) 3.5, EXTRA DOSAGE (ML) 1.6
     Dates: start: 20221213
  3. CARBIDOPA\LEVODOPA [Suspect]
     Active Substance: CARBIDOPA\LEVODOPA
     Dosage: PERCUTANEOUS J-TUBE?MORNING DOSAGE(ML)  9.0, CONTINUOUS DOSAGE (ML/H)  3.7, EXTRA DOSAGE (ML)  1.6
     Route: 065

REACTIONS (12)
  - Facial bones fracture [Recovering/Resolving]
  - Contusion [Unknown]
  - Freezing phenomenon [Unknown]
  - Fall [Unknown]
  - Hallucination [Unknown]
  - Fall [Unknown]
  - Device dislocation [Recovered/Resolved]
  - Feeling abnormal [Unknown]
  - Patella fracture [Recovering/Resolving]
  - Medical device change [Recovered/Resolved]
  - Face injury [Unknown]
  - Limb injury [Unknown]

NARRATIVE: CASE EVENT DATE: 20221207
